FAERS Safety Report 8609930 (Version 2)
Quarter: 2012Q4

REPORT INFORMATION
  Report Type: 
  Country: CA (occurrence: CA)
  Receive Date: 20120612
  Receipt Date: 20121008
  Transmission Date: 20130627
  Serious: Yes (Hospitalization, Other)
  Sender: FDA-Public Use
  Company Number: CA-BRISTOL-MYERS SQUIBB COMPANY-16660078

PATIENT
  Age: 56 Year
  Sex: Male

DRUGS (6)
  1. ORENCIA [Suspect]
     Indication: SCLERODERMA
     Dosage: restarted
     Route: 042
     Dates: start: 201004
  2. ORENCIA [Suspect]
     Indication: ARTHRITIS
     Dosage: restarted
     Route: 042
     Dates: start: 201004
  3. PREDNISONE [Concomitant]
  4. HYDROXYCHLOROQUINE [Concomitant]
  5. RAMIPRIL [Concomitant]
  6. NEXIUM [Concomitant]

REACTIONS (1)
  - Myocardial infarction [Recovering/Resolving]
